FAERS Safety Report 15635713 (Version 6)
Quarter: 2023Q4

REPORT INFORMATION
  Report Type: Spontaneous
  Country: ES (occurrence: ES)
  Receive Date: 20181120
  Receipt Date: 20231129
  Transmission Date: 20240110
  Serious: Yes (Death, Hospitalization, Other)
  Sender: FDA-Public Use
  Company Number: ES-AUROBINDO-AUR-APL-2017-48328

PATIENT
  Age: 64 Year
  Sex: Male

DRUGS (24)
  1. IRINOTECAN [Suspect]
     Active Substance: IRINOTECAN
     Indication: Rectosigmoid cancer stage IV
     Dosage: UNK UNK, CYCLIC  ; CYCLICAL
     Route: 065
  2. IRINOTECAN [Suspect]
     Active Substance: IRINOTECAN
     Indication: Metastases to liver
  3. IRINOTECAN [Suspect]
     Active Substance: IRINOTECAN
     Indication: Off label use
  4. CAPECITABINE [Suspect]
     Active Substance: CAPECITABINE
     Indication: Rectosigmoid cancer stage IV
     Dosage: UNK , CYCLICAL, (SEVEN CYCLES)
     Route: 065
  5. OXALIPLATIN [Suspect]
     Active Substance: OXALIPLATIN
     Indication: Metastases to liver
     Dosage: UNK
     Route: 065
  6. OXALIPLATIN [Suspect]
     Active Substance: OXALIPLATIN
     Indication: Adenocarcinoma of colon
  7. AFLIBERCEPT [Suspect]
     Active Substance: AFLIBERCEPT
     Indication: Rectosigmoid cancer stage IV
     Dosage: UNK, CYCLICAL
     Route: 065
  8. AFLIBERCEPT [Suspect]
     Active Substance: AFLIBERCEPT
     Indication: Metastases to liver
  9. LEUCOVORIN CALCIUM [Suspect]
     Active Substance: LEUCOVORIN CALCIUM
     Indication: Rectosigmoid cancer stage IV
     Dosage: UNK, CYCLICAL
     Route: 065
  10. CETUXIMAB [Suspect]
     Active Substance: CETUXIMAB
     Indication: Metastases to liver
     Dosage: UNK
     Route: 065
  11. FLUOROURACIL [Suspect]
     Active Substance: FLUOROURACIL
     Indication: Rectosigmoid cancer stage IV
     Dosage: UNK  ; CYCLICAL
     Route: 065
  12. FLUOROURACIL [Suspect]
     Active Substance: FLUOROURACIL
     Indication: Metastases to liver
  13. LEUCOVORIN [Suspect]
     Active Substance: LEUCOVORIN\LEUCOVORIN CALCIUM
     Indication: Metastases to liver
     Dosage: UNK
     Route: 065
  14. LEUCOVORIN [Suspect]
     Active Substance: LEUCOVORIN\LEUCOVORIN CALCIUM
     Indication: Adenocarcinoma of colon
  15. LEUCOVORIN [Suspect]
     Active Substance: LEUCOVORIN\LEUCOVORIN CALCIUM
     Indication: Rectosigmoid cancer stage IV
  16. BEVACIZUMAB [Concomitant]
     Active Substance: BEVACIZUMAB
     Indication: Rectosigmoid cancer stage IV
     Dosage: UNK, CYCLIC (SEVEN CYCLES)  ; CYCLICAL
     Route: 065
  17. CETUXIMAB [Concomitant]
     Active Substance: CETUXIMAB
     Indication: Rectosigmoid cancer stage IV
     Dosage: UNK, CYCLIC  ; CYCLICAL
     Route: 065
  18. FLUOROURACIL\IRINOTECAN\LEUCOVORIN [Concomitant]
     Active Substance: FLUOROURACIL\IRINOTECAN\LEUCOVORIN
     Indication: Product used for unknown indication
     Dosage: UNKNOWN
     Route: 065
  19. LIDOCAINE [Concomitant]
     Active Substance: LIDOCAINE
     Indication: Product used for unknown indication
     Dosage: UNK
     Route: 065
     Dates: start: 20150113
  20. LORAZEPAM [Concomitant]
     Active Substance: LORAZEPAM
     Indication: Product used for unknown indication
     Dosage: UNK
     Route: 065
     Dates: start: 20150131
  21. OMEPRAZOLE [Concomitant]
     Active Substance: OMEPRAZOLE
     Indication: Product used for unknown indication
     Dosage: UNK
     Route: 065
     Dates: start: 20150131
  22. OXALIPLATIN [Concomitant]
     Active Substance: OXALIPLATIN
     Indication: Rectosigmoid cancer stage IV
     Dosage: UNK
     Route: 065
  23. FLUOROURACIL\IRINOTECAN\LEUCOVORIN [Suspect]
     Active Substance: FLUOROURACIL\IRINOTECAN\LEUCOVORIN
     Indication: Product used for unknown indication
     Dosage: UNK
     Route: 065
  24. FLUOROURACIL\LEUCOVORIN CALCIUM\OXALIPLATIN [Suspect]
     Active Substance: FLUOROURACIL\LEUCOVORIN CALCIUM\OXALIPLATIN
     Indication: Product used for unknown indication
     Dosage: UNK
     Route: 065

REACTIONS (32)
  - Fournier^s gangrene [Fatal]
  - Death [Fatal]
  - Renal failure [Fatal]
  - Coagulopathy [Fatal]
  - Proteus infection [Unknown]
  - Candida infection [Fatal]
  - Klebsiella infection [Fatal]
  - Clostridial infection [Fatal]
  - Pyrexia [Fatal]
  - Chills [Fatal]
  - Erythema [Fatal]
  - Musculoskeletal pain [Unknown]
  - Tachycardia [Fatal]
  - Hypotension [Fatal]
  - Leukocytosis [Fatal]
  - Off label use [Fatal]
  - Tenderness [Fatal]
  - Inflammation [Fatal]
  - Blood creatine phosphokinase increased [Fatal]
  - C-reactive protein increased [Fatal]
  - Induration [Fatal]
  - Blood creatinine increased [Fatal]
  - Blood lactic acid increased [Fatal]
  - Neutrophilia [Fatal]
  - Prothrombin level decreased [Fatal]
  - Drug ineffective [Unknown]
  - Adenocarcinoma of colon [Unknown]
  - Malignant neoplasm progression [Unknown]
  - Epistaxis [Recovered/Resolved]
  - Neutropenia [Recovered/Resolved]
  - Thrombocytopenia [Recovered/Resolved]
  - Urinary tract infection [Recovered/Resolved]

NARRATIVE: CASE EVENT DATE: 20150125
